FAERS Safety Report 20532102 (Version 1)
Quarter: 2022Q1

REPORT INFORMATION
  Report Type: Spontaneous
  Country: US (occurrence: US)
  Receive Date: 20220301
  Receipt Date: 20220301
  Transmission Date: 20220423
  Serious: Yes (Hospitalization, Other)
  Sender: FDA-Public Use
  Company Number: US-AMNEAL PHARMACEUTICALS-2022-AMRX-00480

PATIENT
  Age: 26 Year
  Sex: Male

DRUGS (3)
  1. BUPROPION HYDROCHLORIDE SR [Suspect]
     Active Substance: BUPROPION HYDROCHLORIDE
     Indication: Product used for unknown indication
     Dosage: 27 MILLIGRAM
     Route: 048
  2. PROPRANOLOL HYDROCHLORIDE [Suspect]
     Active Substance: PROPRANOLOL HYDROCHLORIDE
     Indication: Product used for unknown indication
     Dosage: UNK
     Route: 048
  3. AMLODIPINE BESYLATE [Suspect]
     Active Substance: AMLODIPINE BESYLATE
     Indication: Product used for unknown indication
     Dosage: UNK
     Route: 048

REACTIONS (7)
  - Brain death [Recovering/Resolving]
  - Encephalopathy [Recovering/Resolving]
  - Intentional overdose [Unknown]
  - Bradycardia [Recovering/Resolving]
  - Seizure [Recovering/Resolving]
  - Somnolence [Recovering/Resolving]
  - Hypotension [Recovering/Resolving]
